FAERS Safety Report 4962201-3 (Version None)
Quarter: 2006Q2

REPORT INFORMATION
  Report Type: 
  Country: None (occurrence: None)
  Receive Date: 20060403
  Receipt Date: 20060403
  Transmission Date: 20061013
  Serious: No
  Sender: FDA-Public Use
  Company Number: None

PATIENT
  Age: 24 Year
  Sex: Male
  Weight: 72.5755 kg

DRUGS (1)
  1. ROGAINE 5 [Suspect]
     Dosage: 5ML     2

REACTIONS (3)
  - DRUG DEPENDENCE [None]
  - HYPERTENSION [None]
  - VASODILATATION [None]
